FAERS Safety Report 8632220 (Version 5)
Quarter: 2013Q1

REPORT INFORMATION
  Report Type: Report from Study
  Country: FR (occurrence: FR)
  Receive Date: 20120625
  Receipt Date: 20130205
  Transmission Date: 20140127
  Serious: Yes (Death, Hospitalization)
  Sender: FDA-Public Use
  Company Number: FR-CELGENEUS-056-50794-12061743

PATIENT
  Age: 60 Year
  Sex: Female
  Weight: 53.9 kg

DRUGS (7)
  1. VIDAZA [Suspect]
     Indication: MYELODYSPLASTIC SYNDROME
     Dosage: 75 MG/M2
     Route: 058
     Dates: start: 20120521, end: 20120527
  2. REVLIMID [Suspect]
     Indication: MYELODYSPLASTIC SYNDROME
     Dosage: 10 MILLIGRAM
     Route: 048
     Dates: start: 20120521, end: 20120603
  3. ARANESP [Concomitant]
     Indication: MYELODYSPLASTIC SYNDROME
     Dosage: 500
     Route: 058
     Dates: start: 20120128, end: 20120521
  4. LEVOTHYROX [Concomitant]
     Indication: AUTOIMMUNE THYROIDITIS
     Dosage: 100 MILLIGRAM
     Route: 048
     Dates: start: 2009
  5. LEVOTHYROX [Concomitant]
     Dosage: 100 MICROGRAM
     Route: 048
     Dates: start: 20120807
  6. DELURSAN [Concomitant]
     Indication: CHOLANGITIS SCLEROSING
     Dosage: 50 MILLIGRAM
     Route: 048
     Dates: start: 2009
  7. URSODESOXYCHOLIC ACID [Concomitant]
     Indication: AUTOIMMUNE HEPATITIS
     Dosage: 200 MILLIGRAM
     Route: 048
     Dates: start: 20120607

REACTIONS (3)
  - Death [Fatal]
  - Neuropathy peripheral [Not Recovered/Not Resolved]
  - Subdural haematoma [Not Recovered/Not Resolved]
